FAERS Safety Report 6524985-2 (Version None)
Quarter: 2009Q4

REPORT INFORMATION
  Report Type: 
  Country: None (occurrence: None)
  Receive Date: 20091231
  Receipt Date: 20091231
  Transmission Date: 20100525
  Serious: Yes (Other)
  Sender: FDA-Public Use
  Company Number: None

PATIENT
  Age: 22 Year
  Sex: Female
  Weight: 69.8539 kg

DRUGS (1)
  1. LEVAQUIN [Suspect]
     Indication: BRONCHITIS
     Dosage: 1 TABLET ONCE DAILY PO
     Route: 048
     Dates: start: 20091014, end: 20091018

REACTIONS (2)
  - MOVEMENT DISORDER [None]
  - PAIN IN EXTREMITY [None]
